FAERS Safety Report 5099967-0 (Version None)
Quarter: 2006Q3

REPORT INFORMATION
  Report Type: 
  Country: None (occurrence: None)
  Receive Date: 20060906
  Receipt Date: 20060830
  Transmission Date: 20061208
  Serious: Yes (Other)
  Sender: FDA-Public Use
  Company Number: S06-USA-03504-01

PATIENT
  Age: 20 Year
  Sex: Female

DRUGS (10)
  1. LEXAPRO [Suspect]
     Indication: ANXIETY
     Dates: start: 20030101
  2. LEXAPRO [Suspect]
     Indication: DEPRESSION
     Dates: start: 20030101
  3. LEXAPRO [Suspect]
     Indication: ANXIETY
     Dosage: 20 MG QD PO
     Route: 048
     Dates: start: 20060828
  4. LEXAPRO [Suspect]
     Indication: DEPRESSION
     Dosage: 20 MG QD PO
     Route: 048
     Dates: start: 20060828
  5. LEXAPRO [Suspect]
     Indication: ANXIETY
  6. LEXAPRO [Suspect]
     Indication: DEPRESSION
  7. KLONOPIN [Concomitant]
  8. NEURONTIN [Concomitant]
  9. VALIUM [Concomitant]
  10. PERCOCET [Concomitant]

REACTIONS (11)
  - BACK PAIN [None]
  - BIPOLAR DISORDER [None]
  - DIZZINESS [None]
  - HOT FLUSH [None]
  - INFLUENZA LIKE ILLNESS [None]
  - INTENTIONAL SELF-INJURY [None]
  - IRRITABILITY [None]
  - NIGHT SWEATS [None]
  - PAIN IN EXTREMITY [None]
  - SEXUAL ASSAULT VICTIM [None]
  - SUICIDAL IDEATION [None]
